FAERS Safety Report 4393832-X (Version None)
Quarter: 2004Q3

REPORT INFORMATION
  Report Type: 
  Country: None (occurrence: None)
  Receive Date: 20040707
  Receipt Date: 20040621
  Transmission Date: 20050211
  Serious: No
  Sender: FDA-Public Use
  Company Number: 2004-CN-00242CN

PATIENT
  Age: 75 Year
  Sex: Male

DRUGS (3)
  1. MICARDIS [Suspect]
     Indication: HYPERTENSION
     Dosage: 80 MG (80 MG) PO
     Route: 048
     Dates: start: 20030805, end: 20030918
  2. ACETYLSALICYLIC ACID SRT [Concomitant]
  3. VIOXX [Concomitant]

REACTIONS (3)
  - ASTHENIA [None]
  - MONOPLEGIA [None]
  - PARAESTHESIA [None]
